FAERS Safety Report 7703488-3 (Version None)
Quarter: 2011Q3

REPORT INFORMATION
  Report Type: 
  Country: None (occurrence: None)
  Receive Date: 20110823
  Receipt Date: 20110819
  Transmission Date: 20111222
  Serious: Yes (Death, Other)
  Sender: FDA-Public Use
  Company Number: DK-PFIZER INC-2011109963

PATIENT
  Age: 58 Year

DRUGS (7)
  1. FLUNITRAZEPAM [Suspect]
  2. DIAZEPAM [Suspect]
  3. ALPRAZOLAM [Suspect]
  4. CITALOPRAM [Suspect]
  5. KETOBEMIDONE [Suspect]
  6. AMLODIPINE BESYLATE [Suspect]
  7. MIANSERIN [Suspect]

REACTIONS (2)
  - DEATH [None]
  - TOXICITY TO VARIOUS AGENTS [None]
